FAERS Safety Report 8622694-7 (Version None)
Quarter: 2012Q3

REPORT INFORMATION
  Report Type: 
  Country: None (occurrence: None)
  Receive Date: 20120827
  Receipt Date: 20120815
  Transmission Date: 20120928
  Serious: Yes (Hospitalization)
  Sender: FDA-Public Use
  Company Number: US-BAYER-200930294NA

PATIENT
  Age: 50 Year
  Sex: Female
  Weight: 102 kg

DRUGS (8)
  1. YAZ [Suspect]
     Indication: MENOPAUSAL SYMPTOMS
  2. IBUPROFEN [Concomitant]
     Dates: end: 20041210
  3. CYCLESSA [Concomitant]
     Dates: start: 20040925
  4. REMIFEMIN [Concomitant]
     Indication: MENSTRUAL CYCLE MANAGEMENT
     Dosage: UNK
     Dates: start: 20050106
  5. PRAVACHOL [Concomitant]
     Indication: BLOOD CHOLESTEROL INCREASED
  6. YAZ [Suspect]
     Indication: CONTRACEPTION
     Dosage: 1 TAB/DAILY
     Route: 048
     Dates: start: 20040901, end: 20041215
  7. ESTROVEN [Concomitant]
  8. VOLTAREN [Concomitant]
     Dates: end: 20041210

REACTIONS (10)
  - DEEP VEIN THROMBOSIS [None]
  - PLEURITIC PAIN [None]
  - PULMONARY EMBOLISM [None]
  - HAEMOPTYSIS [None]
  - GASTRITIS [None]
  - HAEMATOCHEZIA [None]
  - DYSPNOEA [None]
  - BACK PAIN [None]
  - OEDEMA PERIPHERAL [None]
  - PULMONARY INFARCTION [None]
